FAERS Safety Report 4806907-5 (Version None)
Quarter: 2005Q4

REPORT INFORMATION
  Report Type: 
  Country: None (occurrence: None)
  Receive Date: 20051020
  Receipt Date: 20051020
  Transmission Date: 20060501
  Serious: Yes (Life-Threatening, Hospitalization)
  Sender: FDA-Public Use
  Company Number: None

PATIENT
  Age: 55 Year
  Sex: Male
  Weight: 89.1 kg

DRUGS (21)
  1. AUGMENTIN '500' [Suspect]
  2. IPRATROPIUM BROMIDE [Concomitant]
  3. ALBUTEROL [Concomitant]
  4. RANITIDINE [Concomitant]
  5. METHOCARBAMOL [Concomitant]
  6. SULFAMETHOXAZOLE AND TRIMETHOPRIM DOUBLE STRENGTH [Concomitant]
  7. CLOPIDOGREL BISULFATE [Concomitant]
  8. CLINDAMYCIN PHOSPHATE [Concomitant]
  9. ASPIRIN [Concomitant]
  10. FUROSEMIDE [Concomitant]
  11. IBUPROFEN [Concomitant]
  12. OMEPRAZOLE [Concomitant]
  13. SILDENAFIL CITRATE [Concomitant]
  14. SPIRONOLACTONE [Concomitant]
  15. TRAMADOL HCL [Concomitant]
  16. SIMVASTATIN [Concomitant]
  17. FENTANYL [Concomitant]
  18. CYANOCOBALAMIN [Concomitant]
  19. LITHIUM CARBONATE [Concomitant]
  20. PAROXETINE HCL [Concomitant]
  21. SIMVASTATIN [Concomitant]

REACTIONS (4)
  - ANAPHYLACTIC REACTION [None]
  - APNOEA [None]
  - SYNCOPE [None]
  - TACHYCARDIA [None]
